FAERS Safety Report 8938006 (Version 1)
Quarter: 2012Q4

REPORT INFORMATION
  Report Type: Spontaneous
  Country: US (occurrence: None)
  Receive Date: 20121128
  Receipt Date: 20121128
  Transmission Date: 20130627
  Serious: Yes (Other)
  Sender: FDA-Public Use
  Company Number: None

PATIENT

DRUGS (1)
  1. L-THYROXINE [Suspect]
     Dates: start: 20121015, end: 20121019

REACTIONS (9)
  - Malaise [None]
  - Diarrhoea [None]
  - Vomiting [None]
  - Dyspnoea [None]
  - Chest pain [None]
  - Dizziness [None]
  - Headache [None]
  - Incorrect dose administered [None]
  - Product quality issue [None]
